FAERS Safety Report 19416091 (Version 4)
Quarter: 2021Q3

REPORT INFORMATION
  Report Type: Spontaneous
  Country: US (occurrence: US)
  Receive Date: 20210614
  Receipt Date: 20210917
  Transmission Date: 20211014
  Serious: Yes (Death, Hospitalization, Other)
  Sender: FDA-Public Use
  Company Number: US-CATALYST PHARMACEUTICALS, INC-2021CAT00248

PATIENT
  Age: 72 Year
  Sex: Female
  Weight: 58.97 kg

DRUGS (27)
  1. CALCIUM PLUS VITAMIN D [Concomitant]
     Active Substance: CALCIUM\VITAMIN D
  2. VITAMIN B12 [Concomitant]
     Active Substance: CYANOCOBALAMIN
  3. CEFPODOXIME [Concomitant]
     Active Substance: CEFPODOXIME
  4. ONDANSETRON [Concomitant]
     Active Substance: ONDANSETRON
  5. UNSPECIFIED PROBIOTIC [Concomitant]
  6. TYLENOL EXTRA STRENGTH [Concomitant]
     Active Substance: ACETAMINOPHEN
  7. UNSPECIFIED IV ANTIBIOTIC [Suspect]
     Active Substance: UNSPECIFIED INGREDIENT
     Route: 042
  8. BENADRYL [Concomitant]
     Active Substance: DIPHENHYDRAMINE HYDROCHLORIDE
     Dosage: BEFORE HER IVIG (PREMED)
  9. DIGESTIVE ENZYMES [Concomitant]
     Active Substance: UNSPECIFIED INGREDIENT
     Dosage: WITH MEALS
  10. FIRDAPSE [Suspect]
     Active Substance: AMIFAMPRIDINE PHOSPHATE
     Dosage: INCREASED TO 20 MG, 4X/DAY
     Route: 048
     Dates: start: 201907
  11. PROMACTA [Concomitant]
     Active Substance: ELTROMBOPAG OLAMINE
  12. VALACYCLOVIR [Concomitant]
     Active Substance: VALACYCLOVIR HYDROCHLORIDE
  13. FLUCONAZOLE. [Concomitant]
     Active Substance: FLUCONAZOLE
  14. VITAMIN D3 [Concomitant]
     Active Substance: CHOLECALCIFEROL
  15. ZIEXTENZO [Concomitant]
     Active Substance: PEGFILGRASTIM-BMEZ
  16. FIRDAPSE [Suspect]
     Active Substance: AMIFAMPRIDINE PHOSPHATE
     Dosage: 20 MG, 4X/DAY
     Route: 048
     Dates: end: 20210810
  17. PREDNISONE. [Concomitant]
     Active Substance: PREDNISONE
     Dosage: UNK, 4 DAYS EACH MONTH
  18. FIRDAPSE [Suspect]
     Active Substance: AMIFAMPRIDINE PHOSPHATE
     Indication: MYASTHENIC SYNDROME
     Dosage: UNK
     Dates: end: 201907
  19. FIRDAPSE [Suspect]
     Active Substance: AMIFAMPRIDINE PHOSPHATE
     Dosage: 20 MG, 4X/DAY
     Route: 048
     Dates: start: 20200312
  20. BIOTIN [Concomitant]
     Active Substance: BIOTIN
  21. EMERGEN C IMMUNE PACKETS [Concomitant]
  22. GENGRAF [Concomitant]
     Active Substance: CYCLOSPORINE
  23. GUAIFENESIN. [Concomitant]
     Active Substance: GUAIFENESIN
  24. LEVOXYL [Concomitant]
     Active Substance: LEVOTHYROXINE SODIUM
  25. MULTIVITAMIN [Concomitant]
     Active Substance: VITAMINS
  26. OMEGA 3 [Concomitant]
     Active Substance: OMEGA-3 FATTY ACIDS
  27. TRAMADOL. [Concomitant]
     Active Substance: TRAMADOL

REACTIONS (9)
  - Autoimmune anaemia [Unknown]
  - Seizure [Recovering/Resolving]
  - Hypoaesthesia [Unknown]
  - Fall [Unknown]
  - Red blood cell count decreased [Recovering/Resolving]
  - Aplastic anaemia [Fatal]
  - Asthenia [Unknown]
  - Bacteraemia [Unknown]
  - Paraesthesia [Unknown]

NARRATIVE: CASE EVENT DATE: 2019
